FAERS Safety Report 13865610 (Version 1)
Quarter: 2017Q3

REPORT INFORMATION
  Report Type: Spontaneous
  Country: IT (occurrence: IT)
  Receive Date: 20170814
  Receipt Date: 20170814
  Transmission Date: 20171127
  Serious: Yes (Death, Hospitalization)
  Sender: FDA-Public Use
  Company Number: IT-SA-2017SA144457

PATIENT
  Age: 73 Year
  Sex: Male

DRUGS (12)
  1. MAALOX ANTACID [Concomitant]
     Active Substance: ALUMINUM HYDROXIDE\DIMETHICONE\MAGNESIUM HYDROXIDE
  2. LASIX [Concomitant]
     Active Substance: FUROSEMIDE
     Dosage: DOSE:4 UNIT(S)
     Route: 065
  3. DIDROGYL [Concomitant]
     Active Substance: CALCIFEDIOL
  4. ADENURIC [Concomitant]
     Active Substance: FEBUXOSTAT
     Route: 065
  5. PANTORC [Concomitant]
     Active Substance: PANTOPRAZOLE SODIUM
     Route: 065
  6. COUMADIN [Concomitant]
     Active Substance: WARFARIN SODIUM
     Route: 065
     Dates: start: 20170101, end: 20170522
  7. FERINJECT [Concomitant]
     Active Substance: FERRIC CARBOXYMALTOSE
  8. CATAPRESAN [Concomitant]
     Active Substance: CLONIDINE
  9. CLEXANE [Suspect]
     Active Substance: ENOXAPARIN SODIUM
     Indication: THROMBOSIS PROPHYLAXIS
     Dosage: DOSE:1 UNIT(S)
     Route: 058
     Dates: start: 20170522, end: 20170616
  10. CALCITRIOL. [Concomitant]
     Active Substance: CALCITRIOL
  11. TAVOR (LORAZEPAM) [Concomitant]
     Active Substance: LORAZEPAM
     Route: 065
  12. EPOETIN ZETA [Concomitant]
     Active Substance: ERYTHROPOIETIN

REACTIONS (2)
  - Haematemesis [Fatal]
  - Abdominal pain upper [Fatal]

NARRATIVE: CASE EVENT DATE: 20170616
